FAERS Safety Report 9681657 (Version 4)
Quarter: 2014Q2

REPORT INFORMATION
  Report Type: Report from Study
  Country: DE (occurrence: DE)
  Receive Date: 20131111
  Receipt Date: 20140616
  Transmission Date: 20141212
  Serious: Yes (Hospitalization)
  Sender: FDA-Public Use
  Company Number: DE-PFIZER INC-2013317166

PATIENT
  Age: 64 Year
  Sex: Female
  Weight: 102 kg

DRUGS (6)
  1. IDARUBICIN [Suspect]
     Indication: ACUTE MYELOID LEUKAEMIA
     Dosage: 28 MG, DAILY
     Dates: start: 20130926, end: 20130930
  2. CIPROFLOXACIN [Suspect]
     Indication: PROPHYLAXIS
     Dosage: 1000 MG, DAILY
     Route: 048
     Dates: start: 20130917
  3. CYTARABINE [Suspect]
     Indication: ACUTE MYELOID LEUKAEMIA
     Dosage: 229 MG, DAILY
     Dates: start: 20130926, end: 20131002
  4. ETOPOSIDE [Suspect]
     Indication: ACUTE MYELOID LEUKAEMIA
     Dosage: 458 MG, DAILY
     Dates: start: 20130926, end: 20130928
  5. ATRA [Suspect]
     Indication: ACUTE MYELOID LEUKAEMIA
     Dosage: 45 MG/M2, DAILY
     Dates: start: 20131001, end: 20131016
  6. ACICLOVIR [Suspect]
     Indication: PROPHYLAXIS
     Dosage: 800 MG, DAILY
     Route: 048
     Dates: start: 20130917

REACTIONS (2)
  - Mucosal inflammation [Recovered/Resolved]
  - Enterocolitis haemorrhagic [Recovered/Resolved]
